FAERS Safety Report 5557867-3 (Version None)
Quarter: 2007Q4

REPORT INFORMATION
  Report Type: 
  Country: None (occurrence: None)
  Receive Date: 20071214
  Receipt Date: 20071204
  Transmission Date: 20080405
  Serious: Yes (Hospitalization)
  Sender: FDA-Public Use
  Company Number: AR-ELI_LILLY_AND_COMPANY-AR200712000921

PATIENT
  Age: 75 Year
  Sex: Male

DRUGS (2)
  1. GEMTRO [Suspect]
     Indication: PANCREATIC CARCINOMA
     Dosage: 1000 MG/M2, OTHER
     Route: 042
     Dates: start: 20070430
  2. CISPLATIN [Concomitant]
     Dosage: UNK UNK, OTHER
     Route: 042
     Dates: start: 20070430

REACTIONS (4)
  - FEBRILE NEUTROPENIA [None]
  - LEUKOCYTOCLASTIC VASCULITIS [None]
  - LEUKOPENIA [None]
  - THROMBOCYTOPENIA [None]
